FAERS Safety Report 4453473-2 (Version None)
Quarter: 2004Q3

REPORT INFORMATION
  Report Type: 
  Country: None (occurrence: None)
  Receive Date: 20040920
  Receipt Date: 20040818
  Transmission Date: 20050211
  Serious: Yes (Hospitalization, Disabling)
  Sender: FDA-Public Use
  Company Number: US-MERCK-0408USA01539

PATIENT
  Age: 71 Year
  Sex: Female
  Weight: 63 kg

DRUGS (7)
  1. ASPIRIN [Concomitant]
     Route: 065
  2. LIPITOR [Concomitant]
     Route: 065
  3. CLONAZEPAM [Concomitant]
     Route: 065
  4. PRINIVIL [Concomitant]
     Route: 065
  5. ALEVE [Concomitant]
     Route: 065
  6. ZOLOFT [Concomitant]
     Route: 065
  7. ZOCOR [Suspect]
     Indication: BLOOD CHOLESTEROL INCREASED
     Route: 048
     Dates: start: 20031201, end: 20040810

REACTIONS (4)
  - ARTERIOVENOUS FISTULA, ACQUIRED [None]
  - DRUG INEFFECTIVE [None]
  - MYOPERICARDITIS [None]
  - RETROPERITONEAL HAEMORRHAGE [None]
